FAERS Safety Report 5515425-0 (Version None)
Quarter: 2007Q4

REPORT INFORMATION
  Report Type: 
  Country: None (occurrence: None)
  Receive Date: 20071113
  Receipt Date: 20070213
  Transmission Date: 20080405
  Serious: No
  Sender: FDA-Public Use
  Company Number: A0639519A

PATIENT
  Age: 82 Year
  Sex: Male

DRUGS (6)
  1. COREG [Suspect]
     Dosage: 25MG TWICE PER DAY
     Route: 048
     Dates: start: 20061006
  2. ASPIRIN [Concomitant]
  3. TERAZOSIN HCL [Concomitant]
  4. UNKNOWN MEDICATION [Concomitant]
  5. AVAPRO [Concomitant]
  6. PROSCAR [Concomitant]

REACTIONS (1)
  - FLATULENCE [None]
